FAERS Safety Report 6783303-5 (Version None)
Quarter: 2010Q2

REPORT INFORMATION
  Report Type: 
  Country: None (occurrence: None)
  Receive Date: 20100617
  Receipt Date: 20090323
  Transmission Date: 20101027
  Serious: Yes (Hospitalization)
  Sender: FDA-Public Use
  Company Number: LEO-2010-00520

PATIENT
  Age: 36 Year
  Sex: Female
  Weight: 46 kg

DRUGS (8)
  1. INNOHEP [Suspect]
     Indication: THROMBOSIS PROPHYLAXIS
     Dosage: 4500 IU (4500 IU,1 IN 1 D)
     Dates: start: 20040106, end: 20040919
  2. VITAMINS SUPPLEMENTATION (VITAMINS, OTHER COMBINATIONS) [Concomitant]
  3. ALMINOX (MAGNESIUM OXIDE, ALUMINIUM GLYCINATE) [Concomitant]
  4. PANTOPRAZOL (PANTOPPAZOLE SODIUM) [Concomitant]
  5. LACTULOSE [Concomitant]
  6. OMEPRAZOLE [Concomitant]
  7. ACETAMINOPHEN [Concomitant]
  8. CODEINE SUL TAB [Concomitant]

REACTIONS (4)
  - CAESAREAN SECTION [None]
  - DRUG EXPOSURE DURING PREGNANCY [None]
  - DUODENAL ULCER [None]
  - POSTPARTUM HAEMORRHAGE [None]
